FAERS Safety Report 17948967 (Version 1)
Quarter: 2020Q2

REPORT INFORMATION
  Report Type: Spontaneous
  Country: US (occurrence: US)
  Receive Date: 20200625
  Receipt Date: 20200625
  Transmission Date: 20200714
  Serious: Yes (Hospitalization)
  Sender: FDA-Public Use
  Company Number: None

PATIENT
  Age: 67 Year
  Sex: Female

DRUGS (2)
  1. GLATOPA [Suspect]
     Active Substance: GLATIRAMER ACETATE
     Route: 058
  2. GLATOPA [Concomitant]
     Active Substance: GLATIRAMER ACETATE

REACTIONS (3)
  - Abscess [None]
  - Needle issue [None]
  - Device malfunction [None]

NARRATIVE: CASE EVENT DATE: 20200625
